FAERS Safety Report 20644242 (Version 3)
Quarter: 2022Q2

REPORT INFORMATION
  Report Type: Spontaneous
  Country: US (occurrence: US)
  Receive Date: 20220328
  Receipt Date: 20220421
  Transmission Date: 20220721
  Serious: Yes (Other)
  Sender: FDA-Public Use
  Company Number: US-PFIZER INC-202200474093

PATIENT
  Age: 58 Year
  Sex: Male
  Weight: 79.38 kg

DRUGS (2)
  1. PAXLOVID [Suspect]
     Active Substance: NIRMATRELVIR\RITONAVIR
     Indication: COVID-19 treatment
     Dosage: 300MG OF THE NIRMATRELVIR AND 100MG OF THE RITONAVIR
     Route: 048
     Dates: start: 20220323
  2. GABAPENTIN [Concomitant]
     Active Substance: GABAPENTIN
     Dosage: UNK
     Dates: start: 2020

REACTIONS (5)
  - Diarrhoea [Unknown]
  - Tremor [Not Recovered/Not Resolved]
  - Dysgeusia [Not Recovered/Not Resolved]
  - Pollakiuria [Unknown]
  - Insomnia [Unknown]

NARRATIVE: CASE EVENT DATE: 20220323
